FAERS Safety Report 7077773-5 (Version None)
Quarter: 2010Q4

REPORT INFORMATION
  Report Type: 
  Country: None (occurrence: None)
  Receive Date: 20101101
  Receipt Date: 20101018
  Transmission Date: 20110411
  Serious: Yes (Other)
  Sender: FDA-Public Use
  Company Number: PHHY2010US69759

PATIENT
  Age: 43 Year

DRUGS (1)
  1. DIOVAN [Suspect]
     Dosage: UNK
     Dates: end: 20080501

REACTIONS (4)
  - CEREBROVASCULAR ACCIDENT [None]
  - DEPRESSION [None]
  - HYPERTENSION [None]
  - MEMORY IMPAIRMENT [None]
